FAERS Safety Report 9270771 (Version 2)
Quarter: 2013Q2

REPORT INFORMATION
  Report Type: Spontaneous
  Country: US (occurrence: US)
  Receive Date: 20130506
  Receipt Date: 20130521
  Transmission Date: 20140414
  Serious: Yes (Death)
  Sender: FDA-Public Use
  Company Number: US-BRISTOL-MYERS SQUIBB COMPANY-18828723

PATIENT
  Age: 28 Year
  Sex: Male

DRUGS (4)
  1. ABILIFY [Suspect]
     Indication: DEPRESSION
     Route: 048
     Dates: start: 20120620
  2. LUNESTA [Concomitant]
     Dosage: HS -AT BEDTIME.
  3. RITALIN LA [Concomitant]
  4. WELLBUTRIN [Concomitant]

REACTIONS (1)
  - Death [Fatal]
